FAERS Safety Report 7628794 (Version 4)
Quarter: 2012Q4

REPORT INFORMATION
  Report Type: 
  Country: US (occurrence: US)
  Receive Date: 20101014
  Receipt Date: 20120907
  Transmission Date: 20130627
  Serious: Yes (Hospitalization, Other)
  Sender: FDA-Public Use
  Company Number: US-BAYER-201036635NA

PATIENT
  Age: 49 Year
  Sex: Female
  Weight: 91 kg

DRUGS (1)
  1. YAZ [Suspect]
     Dosage: UNK UNK, QD
     Route: 048
     Dates: start: 200606, end: 200710

REACTIONS (7)
  - Gallbladder disorder [None]
  - Cholecystitis acute [None]
  - Cerebrovascular accident [None]
  - Depression [None]
  - Schizophrenia [None]
  - Brain injury [None]
  - Cognitive disorder [None]
